FAERS Safety Report 6178720-0 (Version None)
Quarter: 2009Q2

REPORT INFORMATION
  Report Type: 
  Country: None (occurrence: None)
  Receive Date: 20090430
  Receipt Date: 20090421
  Transmission Date: 20091009
  Serious: Yes (Hospitalization, Other)
  Sender: FDA-Public Use
  Company Number: DSA_33504_2009

PATIENT
  Sex: Male

DRUGS (2)
  1. XENAZINE [Suspect]
     Indication: HUNTINGTON'S CHOREA
     Dosage: 12.5 MG QD, 12.5 MG BID
     Dates: start: 20090201, end: 20090201
  2. XENAZINE [Suspect]
     Indication: HUNTINGTON'S CHOREA
     Dosage: 12.5 MG QD, 12.5 MG BID
     Dates: start: 20090201, end: 20090410

REACTIONS (10)
  - AGGRESSION [None]
  - DELUSION [None]
  - FAMILY STRESS [None]
  - FOOT AMPUTATION [None]
  - HEAD INJURY [None]
  - LIMB INJURY [None]
  - MOOD ALTERED [None]
  - SELF INJURIOUS BEHAVIOUR [None]
  - SKIN LACERATION [None]
  - SUICIDE ATTEMPT [None]
